FAERS Safety Report 4826154-0 (Version None)
Quarter: 2005Q4

REPORT INFORMATION
  Report Type: 
  Country: None (occurrence: None)
  Receive Date: 20051111
  Receipt Date: 20050927
  Transmission Date: 20060501
  Serious: Yes (Other)
  Sender: FDA-Public Use
  Company Number: US-NOVOPROD-247239

PATIENT
  Age: 76 Year
  Sex: Male
  Weight: 113 kg

DRUGS (19)
  1. NOVOLOG [Suspect]
     Indication: INSULIN-REQUIRING TYPE II DIABETES MELLITUS
     Dosage: 41 IU, QD
     Route: 058
     Dates: start: 20030101
  2. TOPIRAMATE [Concomitant]
     Indication: NEUROPATHY PERIPHERAL
  3. WARFARIN [Concomitant]
     Indication: ANTICOAGULANT THERAPY
  4. FUROSEMIDE [Concomitant]
     Indication: FLUID RETENTION
  5. DOXAZOSIN [Concomitant]
     Indication: URINARY INCONTINENCE
  6. FLUOXETINE [Concomitant]
     Indication: ANXIETY
  7. TRIAMTERENE [Concomitant]
     Indication: HYPERTENSION
  8. ISOSORBIDE DINITRATE [Concomitant]
     Indication: HYPERTENSION
  9. METOPROLOL [Concomitant]
     Indication: HYPERTENSION
  10. SIMVASTATIN [Concomitant]
     Indication: BLOOD CHOLESTEROL INCREASED
  11. DIGOXIN [Concomitant]
     Indication: CARDIAC FAILURE
  12. RABEPRAZOLE SODIUM [Concomitant]
     Indication: GASTROOESOPHAGEAL REFLUX DISEASE
  13. LANTUS [Concomitant]
     Indication: INSULIN-REQUIRING TYPE II DIABETES MELLITUS
  14. TRAZODONE HCL [Concomitant]
     Indication: INSOMNIA
  15. DOCUSATE SODIUM [Concomitant]
     Indication: LAXATIVE SUPPORTIVE CARE
  16. SENNA [Concomitant]
     Indication: LAXATIVE SUPPORTIVE CARE
  17. VITAMIN B COMPLEX CAP [Concomitant]
     Indication: PROPHYLAXIS
  18. VITAMIN E [Concomitant]
     Indication: PROPHYLAXIS
  19. ASCORBIC ACID [Concomitant]
     Indication: PROPHYLAXIS

REACTIONS (2)
  - HEPATIC ENZYME INCREASED [None]
  - PHARMACEUTICAL PRODUCT COMPLAINT [None]
